FAERS Safety Report 5448341-3 (Version None)
Quarter: 2007Q3

REPORT INFORMATION
  Report Type: 
  Country: None (occurrence: None)
  Receive Date: 20070906
  Receipt Date: 20070828
  Transmission Date: 20080115
  Serious: Yes (Death)
  Sender: FDA-Public Use
  Company Number: 17286

PATIENT
  Age: 8 Year
  Sex: Female

DRUGS (13)
  1. METHOTREXATE [Suspect]
     Indication: BONE SARCOMA
  2. METHOTREXATE [Suspect]
     Indication: BONE SARCOMA
  3. ADRIAMYCIN PFS [Suspect]
     Indication: BONE OPERATION
  4. ADRIAMYCIN PFS [Suspect]
     Indication: BONE SARCOMA
  5. ADRIAMYCIN PFS [Suspect]
     Indication: BONE OPERATION
     Dosage: 10 MG
  6. ADRIAMYCIN PFS [Suspect]
     Indication: BONE SARCOMA
     Dosage: 10 MG
  7. ADRIAMYCIN PFS [Suspect]
     Indication: BONE OPERATION
  8. ADRIAMYCIN PFS [Suspect]
     Indication: BONE SARCOMA
  9. IFOSFAMIDE [Suspect]
     Indication: BONE SARCOMA
  10. IFOSFAMIDE [Suspect]
     Indication: BONE SARCOMA
  11. ANESTHETIC [Concomitant]
  12. ANTIBIOTICS [Concomitant]
  13. 95% ALCOHOL [Concomitant]

REACTIONS (2)
  - HAEMORRHAGE INTRACRANIAL [None]
  - PLATELET COUNT DECREASED [None]
